FAERS Safety Report 4340029-5 (Version None)
Quarter: 2004Q2

REPORT INFORMATION
  Report Type: 
  Country: None (occurrence: None)
  Receive Date: 20040416
  Receipt Date: 20020527
  Transmission Date: 20050107
  Serious: Yes (Hospitalization)
  Sender: FDA-Public Use
  Company Number: FI-ROCHE-314002

PATIENT
  Age: 44 Year
  Sex: Male
  Weight: 53 kg

DRUGS (11)
  1. TOLCAPONE [Suspect]
     Route: 048
     Dates: start: 20020514
  2. SINEMET [Concomitant]
     Dates: start: 20020522
  3. SINEMET DEPOT [Concomitant]
     Dates: start: 20020522, end: 20020525
  4. ELDEPRYL [Concomitant]
     Dates: start: 20020326, end: 20020614
  5. SIFROL [Concomitant]
     Dates: start: 19990817
  6. REMERON [Concomitant]
     Dates: start: 20020604
  7. NORITREN [Concomitant]
     Dates: start: 20020522, end: 20020523
  8. IMOVANE [Concomitant]
     Dates: start: 20020523
  9. CIPRAMIL [Concomitant]
     Dates: start: 20040322
  10. SEROQUEL [Concomitant]
     Dates: start: 20031008
  11. MADOPAR [Concomitant]
     Dosage: DRUG NAME: MADOPAR 100/25
     Dates: start: 20020902

REACTIONS (2)
  - DYSKINESIA [None]
  - SUICIDAL IDEATION [None]
